FAERS Safety Report 4325634-4 (Version None)
Quarter: 2004Q1

REPORT INFORMATION
  Report Type: 
  Country: None (occurrence: None)
  Receive Date: 20040324
  Receipt Date: 20040308
  Transmission Date: 20041129
  Serious: Yes (Congenital Anomaly)
  Sender: FDA-Public Use
  Company Number: NO-JNJFOC-20040301740

PATIENT

DRUGS (4)
  1. RISPERDAL [Suspect]
     Indication: DRUG USE FOR UNKNOWN INDICATION
     Dosage: 6 MG, INTRAUTERINE
     Route: 015
  2. IMOVANE (ZOPICLONE) TABLETS [Suspect]
     Indication: DRUG USE FOR UNKNOWN INDICATION
     Dosage: INTRA-UTERNINE
     Route: 015
  3. VIVAL (DIAZEPAM) TABLETS [Suspect]
     Indication: DRUG USE FOR UNKNOWN INDICATION
     Dosage: INTRA-UTERNINE
     Route: 015
  4. INSULIN [Concomitant]

REACTIONS (7)
  - CLEFT LIP [None]
  - CLEFT PALATE [None]
  - CONVULSION [None]
  - DRUG EXPOSURE DURING PREGNANCY [None]
  - DRUG INTERACTION [None]
  - MATERNAL DRUGS AFFECTING FOETUS [None]
  - THORACIC VERTEBRA INJURY [None]
